FAERS Safety Report 9681503 (Version 5)
Quarter: 2015Q1

REPORT INFORMATION
  Report Type: Spontaneous
  Country: BR (occurrence: BR)
  Receive Date: 20131111
  Receipt Date: 20150224
  Transmission Date: 20150721
  Serious: Yes (Death, Hospitalization, Other)
  Sender: FDA-Public Use
  Company Number: BR-PFIZER INC-2013317507

PATIENT
  Age: 76 Year
  Sex: Male

DRUGS (2)
  1. DETRUSITOL LA [Suspect]
     Active Substance: TOLTERODINE TARTRATE
     Dosage: 4MG, 1X/DAY
     Route: 048
     Dates: start: 20110808
  2. OLMETEC [Suspect]
     Active Substance: OLMESARTAN MEDOXOMIL
     Indication: BLOOD PRESSURE
     Dosage: 20 MG, UNK
     Route: 048

REACTIONS (5)
  - Pancreatic carcinoma [Fatal]
  - Urinary tract infection [Unknown]
  - Metastases to liver [Fatal]
  - Femur fracture [Unknown]
  - Fall [Unknown]
